FAERS Safety Report 6670345-3 (Version None)
Quarter: 2010Q2

REPORT INFORMATION
  Report Type: 
  Country: None (occurrence: None)
  Receive Date: 20100405
  Receipt Date: 20100401
  Transmission Date: 20101027
  Serious: Yes (Other)
  Sender: FDA-Public Use
  Company Number: 2010SP017294

PATIENT
  Age: 71 Year
  Sex: Female

DRUGS (2)
  1. DIPROSTENE      (BETAMETHASONE SODIUM PHOSPHATE/DIPROPIONATE /00582101 [Suspect]
     Indication: BACK PAIN
     Dosage: 1 DF;ONCE;OTHER
     Dates: start: 20100301, end: 20100301
  2. SPIRONOLACTONE [Concomitant]

REACTIONS (2)
  - ANXIETY [None]
  - TACHYCARDIA [None]
